FAERS Safety Report 8812756 (Version 1)
Quarter: 2012Q4

REPORT INFORMATION
  Report Type: 
  Country: GB (occurrence: GB)
  Receive Date: 20120927
  Receipt Date: 20120927
  Transmission Date: 20130627
  Serious: Yes (Hospitalization)
  Sender: FDA-Public Use
  Company Number: GB-WATSON-2012-16576

PATIENT
  Age: 76 Year
  Sex: Male
  Weight: 68 kg

DRUGS (9)
  1. RIVASTIGMINE [Suspect]
     Dosage: 6 mg, bid
     Route: 048
  2. ASPIRIN [Suspect]
     Indication: CARDIOVASCULAR EVENT PROPHYLAXIS
     Dosage: 75 mg, daily
     Route: 048
     Dates: end: 20120825
  3. CO-CODAMOL [Concomitant]
     Indication: PRODUCT USED FOR UNKNOWN INDICATION
     Dosage: 2 DF, q2h Strength 8/500
     Route: 065
  4. DOMPERIDONE [Concomitant]
     Indication: PRODUCT USED FOR UNKNOWN INDICATION
     Dosage: 10 mg, tid
     Route: 065
  5. VENLAFAXINE [Concomitant]
     Indication: PRODUCT USED FOR UNKNOWN INDICATION
     Dosage: 75 mg, daily
     Route: 065
  6. FLUDROCORTISONE [Concomitant]
     Indication: PRODUCT USED FOR UNKNOWN INDICATION
     Dosage: 300 mcg, daily at lunchtime
     Route: 065
  7. NITROFURANTOIN [Concomitant]
     Indication: PRODUCT USED FOR UNKNOWN INDICATION
     Dosage: 50 mg, daily at teatime
     Route: 065
  8. CO-BENELDOPA [Concomitant]
     Indication: PRODUCT USED FOR UNKNOWN INDICATION
     Dosage: 12.5/50. Take two three times a day and and one at night
     Route: 065
  9. DOCUSATE [Concomitant]
     Indication: PRODUCT USED FOR UNKNOWN INDICATION
     Dosage: 100 mg, bid
     Route: 065

REACTIONS (4)
  - Upper gastrointestinal haemorrhage [Recovered/Resolved]
  - Melaena [Recovered/Resolved]
  - Blood urea increased [Recovered/Resolved]
  - Blood pressure decreased [Recovered/Resolved]
